FAERS Safety Report 23358965 (Version 1)
Quarter: 2024Q1

REPORT INFORMATION
  Report Type: Spontaneous
  Country: CN (occurrence: CN)
  Receive Date: 20240102
  Receipt Date: 20240102
  Transmission Date: 20240410
  Serious: Yes (Hospitalization)
  Sender: FDA-Public Use
  Company Number: CN-PFIZER INC-PV202300207226

PATIENT
  Age: 56 Year
  Sex: Male
  Weight: 77.5 kg

DRUGS (6)
  1. CYTARABINE [Suspect]
     Active Substance: CYTARABINE
     Indication: Acute leukaemia
     Dosage: 100 MG, 1X/DAY
     Route: 037
     Dates: start: 20231120, end: 20231120
  2. CYTARABINE [Suspect]
     Active Substance: CYTARABINE
     Dosage: 200 MG, 1X/DAY
     Route: 041
     Dates: start: 20231122, end: 20231126
  3. METHOTREXATE [Suspect]
     Active Substance: METHOTREXATE
     Indication: Acute leukaemia
     Dosage: 10 ML, 1X/DAY
     Route: 037
     Dates: start: 20231120, end: 20231120
  4. MITOXANTRONE HYDROCHLORIDE [Suspect]
     Active Substance: MITOXANTRONE HYDROCHLORIDE
     Indication: Acute leukaemia
     Dosage: 10 ML, 1X/DAY
     Route: 041
     Dates: start: 20231122, end: 20231123
  5. SODIUM CHLORIDE [Concomitant]
     Active Substance: SODIUM CHLORIDE
     Indication: Vehicle solution use
     Dosage: 100 ML, 1X/DAY
     Route: 041
     Dates: start: 20231122, end: 20231126
  6. DEXTROSE [Concomitant]
     Active Substance: DEXTROSE\DEXTROSE MONOHYDRATE
     Indication: Vehicle solution use
     Dosage: 250 ML, 1X/DAY
     Route: 041
     Dates: start: 20231122, end: 20231123

REACTIONS (2)
  - Bronchopulmonary aspergillosis [Recovering/Resolving]
  - Immunodeficiency [Recovering/Resolving]

NARRATIVE: CASE EVENT DATE: 20231204
